FAERS Safety Report 18682131 (Version 1)
Quarter: 2020Q4

REPORT INFORMATION
  Report Type: Spontaneous
  Country: US (occurrence: US)
  Receive Date: 20201228
  Receipt Date: 20201228
  Transmission Date: 20210114
  Serious: Yes (Life-Threatening, Hospitalization)
  Sender: FDA-Public Use
  Company Number: None

PATIENT
  Age: 75 Year
  Sex: Male
  Weight: 90 kg

DRUGS (1)
  1. LISINOPRIL (LISINOPRIL 20MG TAB) [Suspect]
     Active Substance: LISINOPRIL
     Route: 048
     Dates: start: 20201005, end: 20201014

REACTIONS (5)
  - Lip swelling [None]
  - Flushing [None]
  - Tongue oedema [None]
  - Eyelid oedema [None]
  - Angioedema [None]

NARRATIVE: CASE EVENT DATE: 20201014
